FAERS Safety Report 10058520 (Version 2)
Quarter: 2014Q2

REPORT INFORMATION
  Report Type: Spontaneous
  Country: IT (occurrence: None)
  Receive Date: 20140402
  Receipt Date: 20140603
  Transmission Date: 20141212
  Serious: Yes (Death, Life-Threatening, Hospitalization, Disabling, Other)
  Sender: FDA-Public Use
  Company Number: 2014DEPIT00060

PATIENT
  Age: 58 Year
  Sex: Female

DRUGS (3)
  1. DEPOCYT(E) (CYTARABINE) LIPOSOME INJECTABLE SUSPENSION, MG [Suspect]
     Indication: ACUTE LYMPHOCYTIC LEUKAEMIA
     Route: 037
  2. METHOTREXATE (METHOTREXATE SODIUM) [Suspect]
     Indication: ACUTE LYMPHOCYTIC LEUKAEMIA
  3. CHEMOTHERAPEUTICS (CHEMOTHERAPEUTICS) [Suspect]
     Indication: ACUTE LYMPHOCYTIC LEUKAEMIA

REACTIONS (9)
  - Colitis [None]
  - Ileus [None]
  - Cardiac failure congestive [None]
  - Multi-organ failure [None]
  - Peritonitis [None]
  - Diverticulitis [None]
  - Enterococcus test positive [None]
  - Pleural effusion [None]
  - Pneumonia [None]
